FAERS Safety Report 9044413 (Version 2)
Quarter: 2013Q2

REPORT INFORMATION
  Report Type: Spontaneous
  Country: US (occurrence: US)
  Receive Date: 20130131
  Receipt Date: 20130620
  Transmission Date: 20140414
  Serious: No
  Sender: FDA-Public Use
  Company Number: US-BIOGENIDEC-2013BI006632

PATIENT
  Age: 50 Year
  Sex: Female

DRUGS (1)
  1. AVONEX [Suspect]
     Indication: MULTIPLE SCLEROSIS
     Route: 030
     Dates: start: 20120824

REACTIONS (5)
  - Bronchitis [Not Recovered/Not Resolved]
  - Cough [Not Recovered/Not Resolved]
  - Influenza like illness [Recovered/Resolved]
  - Insomnia [Not Recovered/Not Resolved]
  - Multiple sclerosis relapse [Not Recovered/Not Resolved]
